FAERS Safety Report 6789794-8 (Version None)
Quarter: 2010Q2

REPORT INFORMATION
  Report Type: 
  Country: None (occurrence: None)
  Receive Date: 20100624
  Receipt Date: 20100615
  Transmission Date: 20101027
  Serious: Yes (Hospitalization, Other)
  Sender: FDA-Public Use
  Company Number: US-JNJFOC-20100605448

PATIENT
  Sex: Male
  Weight: 68.04 kg

DRUGS (3)
  1. DURAGESIC-100 [Suspect]
     Indication: PAIN
     Dosage: 100 UG/HR PLUS 50 UG/HR
     Route: 062
  2. DURAGESIC-100 [Suspect]
     Dosage: 100 UG/HR PLUS 50 UG/HR
     Route: 062
  3. PAIN MEDICATIONS (NOS) [Concomitant]
     Indication: DRUG USE FOR UNKNOWN INDICATION
     Route: 065

REACTIONS (10)
  - AMNESIA [None]
  - APPLICATION SITE REACTION [None]
  - BACTERIAL INFECTION [None]
  - BLOOD TESTOSTERONE DECREASED [None]
  - DRUG ADMINISTERED AT INAPPROPRIATE SITE [None]
  - DRUG INEFFECTIVE [None]
  - FURUNCLE [None]
  - LOWER RESPIRATORY TRACT INFECTION BACTERIAL [None]
  - THROMBOSIS [None]
  - WRONG TECHNIQUE IN DRUG USAGE PROCESS [None]
